FAERS Safety Report 10133106 (Version 2)
Quarter: 2014Q2

REPORT INFORMATION
  Report Type: Spontaneous
  Country: US (occurrence: US)
  Receive Date: 20140428
  Receipt Date: 20140428
  Transmission Date: 20141212
  Serious: Yes (Hospitalization)
  Sender: FDA-Public Use
  Company Number: US-BRACCO-009285

PATIENT
  Age: 52 Year
  Sex: Female
  Weight: 91 kg

DRUGS (11)
  1. CIMETIDINE [Concomitant]
     Dosage: GIVEN AT 08:56
     Route: 048
     Dates: start: 20130314, end: 20130314
  2. GLUCOPHAGE [Concomitant]
     Dosage: GIVEN AT 23:40
     Route: 048
     Dates: start: 20130313, end: 20130313
  3. GLUCOPHAGE [Concomitant]
     Dosage: GIVEN AT 08:59
     Route: 048
     Dates: start: 20130314, end: 20130314
  4. CHANTIX [Concomitant]
     Dosage: GIVEN AT 09:01
     Route: 048
     Dates: start: 20130314, end: 20130314
  5. ELAVIL [Concomitant]
     Dosage: GIVEN AT 23:40
     Route: 048
     Dates: start: 20130313, end: 20130313
  6. CELEXA [Concomitant]
     Dosage: GIVEN AT 23:41
     Route: 048
     Dates: start: 20130313, end: 20130313
  7. SYNTHROID [Concomitant]
     Dosage: GIVEN AT 08:54
     Route: 048
     Dates: start: 20130314, end: 20130314
  8. ZOCOR [Concomitant]
     Dosage: GIVEN AT 09:00
     Route: 048
     Dates: start: 20130314, end: 20130314
  9. AMBIEN [Concomitant]
     Dosage: GIVEN AT 23:40
     Route: 048
     Dates: start: 20130313, end: 20130313
  10. VICODIN [Concomitant]
     Dosage: VICODIN 500MG-5 MG AS NEEDED GIVEN AT 08:54
     Route: 048
     Dates: start: 20130314, end: 20130314
  11. PROHANCE [Suspect]
     Indication: LIVER SCAN
     Route: 042
     Dates: start: 20130313, end: 20130313

REACTIONS (4)
  - Dyspnoea [Recovered/Resolved]
  - Nausea [Recovered/Resolved]
  - Erythema [Recovered/Resolved]
  - Vomiting [Recovered/Resolved]
